FAERS Safety Report 11898321 (Version 1)
Quarter: 2016Q1

REPORT INFORMATION
  Report Type: Spontaneous
  Country: US (occurrence: US)
  Receive Date: 20160108
  Receipt Date: 20160108
  Transmission Date: 20160526
  Serious: No
  Sender: FDA-Public Use
  Company Number: US-WATSON-2015-12244

PATIENT
  Age: 72 Year
  Sex: Female

DRUGS (5)
  1. ALORA [Suspect]
     Active Substance: ESTRADIOL
     Indication: OESTROGEN REPLACEMENT THERAPY
     Dosage: ONE PATCH EVERY FIVE DAYS
     Route: 062
     Dates: start: 201504
  2. ALORA [Suspect]
     Active Substance: ESTRADIOL
     Dosage: ONE PATCH EVERY FOUR DAYS
     Route: 062
     Dates: start: 201501
  3. LOSARTAN POTASSIUM. [Concomitant]
     Active Substance: LOSARTAN POTASSIUM
     Indication: HYPERTENSION
     Dosage: 25 MG, DAILY
     Route: 048
  4. BABY ASPIRIN [Concomitant]
     Active Substance: ASPIRIN
     Indication: PROPHYLAXIS
     Dosage: 1 MG, DAILY
     Route: 048
  5. COREG [Concomitant]
     Active Substance: CARVEDILOL
     Indication: CARDIAC FAILURE
     Dosage: 10 MG, DAILY
     Route: 048

REACTIONS (2)
  - Application site pruritus [Not Recovered/Not Resolved]
  - Migraine [Not Recovered/Not Resolved]

NARRATIVE: CASE EVENT DATE: 201504
